FAERS Safety Report 25961352 (Version 1)
Quarter: 2025Q4

REPORT INFORMATION
  Report Type: Spontaneous
  Country: EU (occurrence: EU)
  Receive Date: 20251027
  Receipt Date: 20251027
  Transmission Date: 20260118
  Serious: Yes (Hospitalization)
  Sender: NOVARTIS
  Company Number: None

PATIENT
  Age: 27 Year
  Sex: Female

DRUGS (3)
  1. MYFORTIC [Interacting]
     Active Substance: MYCOPHENOLATE SODIUM
     Indication: Prophylaxis against transplant rejection
     Dosage: 360 MG, Q12H (MYFORTIC 360 MG COMPRIMIDOS GASTRORRESISTENTES, 50 COMPRIMIDOS )
     Route: 048
     Dates: start: 202408
  2. PROGRAF [Interacting]
     Active Substance: TACROLIMUS
     Indication: Prophylaxis against transplant rejection
     Dosage: 3.5 MG, Q12H (PROGRAF 1 MG CAPSULAS DURAS , 30 C?PSULAS )
     Route: 048
     Dates: start: 202408
  3. PREDNISONE [Interacting]
     Active Substance: PREDNISONE
     Indication: Prophylaxis against transplant rejection
     Dosage: 5 MG, Q24H (PREDNISONA (886A)
     Route: 048
     Dates: start: 202408

REACTIONS (1)
  - Peritoneal abscess [Recovered/Resolved]

NARRATIVE: CASE EVENT DATE: 20250607
